FAERS Safety Report 15643867 (Version 1)
Quarter: 2018Q4

REPORT INFORMATION
  Report Type: Spontaneous
  Country: US (occurrence: US)
  Receive Date: 20181115
  Receipt Date: 20181115
  Transmission Date: 20190205
  Serious: Yes (Life-Threatening, Hospitalization, Disabling)
  Sender: FDA-Public Use
  Company Number: None

PATIENT
  Age: 71 Year
  Sex: Male
  Weight: 85.5 kg

DRUGS (6)
  1. VITAMIN D [Concomitant]
     Active Substance: CHOLECALCIFEROL
  2. CRESTOR [Concomitant]
     Active Substance: ROSUVASTATIN CALCIUM
  3. LANTUS [Concomitant]
     Active Substance: INSULIN GLARGINE
  4. TRESIBA [Suspect]
     Active Substance: INSULIN DEGLUDEC
     Indication: DIABETES MELLITUS
     Route: 030
     Dates: start: 20170118, end: 20180124
  5. ASPIRIN. [Concomitant]
     Active Substance: ASPIRIN
  6. HBP MEDS [Concomitant]

REACTIONS (7)
  - Glomerulonephritis [None]
  - Pruritus [None]
  - Fatigue [None]
  - Pain [None]
  - Anxiety [None]
  - Mental disorder [None]
  - Speech disorder [None]
